FAERS Safety Report 13801428 (Version 1)
Quarter: 2017Q3

REPORT INFORMATION
  Report Type: Spontaneous
  Country: US (occurrence: US)
  Receive Date: 20170727
  Receipt Date: 20170727
  Transmission Date: 20171127
  Serious: No
  Sender: FDA-Public Use
  Company Number: US-SEBELA IRELAND LIMITED-2016SEB01514

PATIENT
  Age: 57 Year
  Sex: Female
  Weight: 68.27 kg

DRUGS (4)
  1. MULTIVITAMIN [Concomitant]
     Active Substance: VITAMINS
  2. CHLORPHENIRAMINE 8MG/METHSCOPOLAMINE 2.5MG/PHENYLEPHRINE 20MG (CMPDED) [Suspect]
     Active Substance: CHLORPHENIRAMINE\METHSCOPOLAMINE\PHENYLEPHRINE
     Indication: SEASONAL ALLERGY
     Dosage: UNK
     Dates: start: 201610, end: 201610
  3. CALCIUM [Concomitant]
     Active Substance: CALCIUM
  4. BRISDELLE [Suspect]
     Active Substance: PAROXETINE MESYLATE
     Indication: HOT FLUSH
     Dosage: 7.5 MG, 1X/DAY
     Route: 048
     Dates: start: 20160913

REACTIONS (2)
  - Diarrhoea [Not Recovered/Not Resolved]
  - Abdominal pain upper [Not Recovered/Not Resolved]

NARRATIVE: CASE EVENT DATE: 201610
